FAERS Safety Report 4868763-9 (Version None)
Quarter: 2005Q4

REPORT INFORMATION
  Report Type: 
  Country: None (occurrence: None)
  Receive Date: 20051223
  Receipt Date: 20051213
  Transmission Date: 20060501
  Serious: Yes (Hospitalization, Other)
  Sender: FDA-Public Use
  Company Number: 220292

PATIENT
  Age: 57 Year
  Sex: Female
  Weight: 56 kg

DRUGS (5)
  1. RITUXAN [Suspect]
     Indication: NON-HODGKIN'S LYMPHOMA
     Dosage: 250 MG INTRAVENOUS
     Route: 042
     Dates: start: 20050118, end: 20050118
  2. RITUXAN [Suspect]
     Indication: NON-HODGKIN'S LYMPHOMA
     Dosage: 250 MG INTRAVENOUS
     Route: 042
     Dates: start: 20050125, end: 20050125
  3. ZEVALIN [Suspect]
     Indication: NON-HODGKIN'S LYMPHOMA
     Dosage: 3.5 CL, SINGLE
     Dates: start: 20050118
  4. ZEVALIN [Suspect]
     Indication: NON-HODGKIN'S LYMPHOMA
     Dosage: 0.4 CI, SINGLE
     Dates: start: 20050125
  5. SHL 749 (IBRITUMOMAB TIUXETAN) [Concomitant]

REACTIONS (7)
  - B-CELL LYMPHOMA [None]
  - FEBRILE NEUTROPENIA [None]
  - GINGIVAL PAIN [None]
  - HAEMOGLOBIN DECREASED [None]
  - NEOPLASM RECURRENCE [None]
  - PLATELET COUNT DECREASED [None]
  - WHITE BLOOD CELL COUNT DECREASED [None]
